FAERS Safety Report 8033154-9 (Version None)
Quarter: 2012Q1

REPORT INFORMATION
  Report Type: 
  Country: None (occurrence: None)
  Receive Date: 20120110
  Receipt Date: 20120110
  Transmission Date: 20120608
  Serious: Yes (Other)
  Sender: FDA-Public Use
  Company Number: None

PATIENT
  Age: 66 Year
  Sex: Female
  Weight: 77.11 kg

DRUGS (1)
  1. CYMBALTA [Suspect]
     Indication: ARTHRALGIA
     Dosage: 60MG
     Route: 048

REACTIONS (4)
  - DRY MOUTH [None]
  - DIZZINESS [None]
  - NIGHTMARE [None]
  - SLEEP TALKING [None]
